FAERS Safety Report 21608054 (Version 1)
Quarter: 2022Q4

REPORT INFORMATION
  Report Type: Spontaneous
  Country: CN (occurrence: CN)
  Receive Date: 20221117
  Receipt Date: 20221117
  Transmission Date: 20230113
  Serious: Yes (Other)
  Sender: FDA-Public Use
  Company Number: CN-009507513-2211CHN004875

PATIENT
  Age: 2 Year
  Sex: Female

DRUGS (5)
  1. POSACONAZOLE [Suspect]
     Active Substance: POSACONAZOLE
     Indication: Fungal infection
     Dosage: 12 MILLIGRAM/KILOGRAM
     Route: 048
  2. IMIPENEM AND CILASTATIN [Suspect]
     Active Substance: CILASTATIN SODIUM\IMIPENEM
     Indication: Fungal infection
     Dosage: 15 MILLIGRAM/SQ. METER, Q6H
     Route: 042
  3. VINDESINE [Concomitant]
     Active Substance: VINDESINE
     Indication: Fungal infection
     Dosage: 3 MILLIGRAM/SQ. METER
     Route: 042
  4. DOXORUBICIN [Concomitant]
     Active Substance: DOXORUBICIN
     Indication: Fungal infection
     Dosage: 30 MILLIGRAM/SQ. METER
     Route: 042
  5. DEXAMETHASONE [Concomitant]
     Active Substance: DEXAMETHASONE
     Indication: Fungal infection
     Dosage: 10 MILLIGRAM/SQ. METER
     Route: 042

REACTIONS (3)
  - Posterior reversible encephalopathy syndrome [Recovered/Resolved]
  - Product use issue [Unknown]
  - Product use issue [Unknown]
